FAERS Safety Report 12772849 (Version 1)
Quarter: 2016Q3

REPORT INFORMATION
  Report Type: Spontaneous
  Country: US (occurrence: US)
  Receive Date: 20160922
  Receipt Date: 20160922
  Transmission Date: 20161109
  Serious: Yes (Other)
  Sender: FDA-Public Use
  Company Number: US-PFIZER INC-2016438664

PATIENT
  Sex: Female

DRUGS (1)
  1. MENEST [Suspect]
     Active Substance: ESTROGENS, ESTERIFIED
     Indication: MENOPAUSE
     Dosage: UNK
     Dates: end: 201609

REACTIONS (4)
  - Nervous system disorder [Unknown]
  - Head injury [Unknown]
  - Concussion [Unknown]
  - Tongue neoplasm [Unknown]
